FAERS Safety Report 9992196 (Version 1)
Quarter: 2014Q1

REPORT INFORMATION
  Report Type: Spontaneous
  Country: US (occurrence: None)
  Receive Date: 20140228
  Receipt Date: 20140228
  Transmission Date: 20141002
  Serious: Yes (Hospitalization)
  Sender: FDA-Public Use
  Company Number: UTC-034008

PATIENT
  Age: 68 Year
  Sex: Female
  Weight: 44.5 kg

DRUGS (1)
  1. REMODULIN [Suspect]
     Indication: PULMONARY ARTERIAL HYPERTENSION
     Dosage: 82.08 UG/KG (0.057 UG/KG 1 IN 1 MIN) INTRAVENOUS DRIP
     Route: 041
     Dates: start: 20100522

REACTIONS (1)
  - Dizziness [None]
